FAERS Safety Report 4728092-0 (Version None)
Quarter: 2005Q3

REPORT INFORMATION
  Report Type: 
  Country: None (occurrence: None)
  Receive Date: 20050729
  Receipt Date: 20040205
  Transmission Date: 20060218
  Serious: Yes (Other)
  Sender: FDA-Public Use
  Company Number: PHBS2004US01841

PATIENT
  Age: 82 Year
  Sex: Female

DRUGS (5)
  1. CLOZAPINE [Suspect]
     Dosage: UNK, UNK
     Route: 065
  2. CLOZAPINE [Suspect]
     Dosage: 150 MG/D
     Route: 065
  3. VENLAFAXINE (NGX) [Suspect]
     Indication: DEPRESSION
     Dosage: 375 MG/D
     Route: 065
  4. LITHIUM [Concomitant]
     Dosage: 450 MG/D
     Route: 065
  5. ARIPIPRAZOLE (NGX) [Suspect]
     Indication: DEPRESSION
     Dosage: 15 MG/D
     Route: 065

REACTIONS (4)
  - COGWHEEL RIGIDITY [None]
  - DYSARTHRIA [None]
  - PLEUROTHOTONUS [None]
  - TREMOR [None]
